FAERS Safety Report 7289065-X (Version None)
Quarter: 2011Q1

REPORT INFORMATION
  Report Type: 
  Country: None (occurrence: None)
  Receive Date: 20110211
  Receipt Date: 20110208
  Transmission Date: 20110831
  Serious: Yes (Hospitalization, Other)
  Sender: FDA-Public Use
  Company Number: US-PFIZER INC-2010150859

PATIENT
  Sex: Male

DRUGS (2)
  1. CHANTIX [Suspect]
     Dosage: 5 MG, UNK
     Dates: start: 20071101, end: 20071201
  2. CHANTIX [Suspect]
     Indication: SMOKING CESSATION THERAPY
     Dosage: UNK
     Dates: start: 20070501

REACTIONS (13)
  - PSYCHOTIC DISORDER [None]
  - HALLUCINATION [None]
  - ANXIETY [None]
  - EMOTIONAL DISORDER [None]
  - SUICIDE ATTEMPT [None]
  - PANIC ATTACK [None]
  - DEPRESSION [None]
  - ALCOHOL ABUSE [None]
  - AGGRESSION [None]
  - PARANOIA [None]
  - DEREALISATION [None]
  - LOSS OF CONSCIOUSNESS [None]
  - MENTAL DISORDER [None]
